FAERS Safety Report 6082852-5 (Version None)
Quarter: 2009Q1

REPORT INFORMATION
  Report Type: 
  Country: None (occurrence: None)
  Receive Date: 20090218
  Receipt Date: 20090210
  Transmission Date: 20090719
  Serious: Yes (Other)
  Sender: FDA-Public Use
  Company Number: AU-ABBOTT-08P-008-0494802-00

PATIENT
  Sex: Male

DRUGS (2)
  1. HUMIRA [Suspect]
     Indication: RHEUMATOID ARTHRITIS
     Dates: start: 20080901, end: 20081101
  2. METHOTREXATE [Concomitant]
     Indication: DRUG USE FOR UNKNOWN INDICATION
     Dosage: LONG TERM

REACTIONS (9)
  - ARTHRALGIA [None]
  - BEDRIDDEN [None]
  - BONE PAIN [None]
  - INFLUENZA LIKE ILLNESS [None]
  - MALAISE [None]
  - MASS [None]
  - PAIN [None]
  - PAIN IN EXTREMITY [None]
  - RHEUMATOID NODULE [None]
